FAERS Safety Report 7217610-9 (Version None)
Quarter: 2010Q4

REPORT INFORMATION
  Report Type: 
  Country: None (occurrence: None)
  Receive Date: 20101227
  Receipt Date: 20101217
  Transmission Date: 20110411
  Serious: Yes (Life-Threatening, Hospitalization, Other)
  Sender: FDA-Public Use
  Company Number: 2009SP043064

PATIENT
  Age: 28 Year
  Sex: Female
  Weight: 90.7194 kg

DRUGS (2)
  1. NUVARING [Suspect]
     Indication: CONTRACEPTION
     Dosage: ; VAG
     Route: 067
     Dates: start: 20070320, end: 20081020
  2. TRAZODONE [Suspect]
     Indication: INSOMNIA
     Dates: start: 20080301

REACTIONS (30)
  - ABDOMINAL PAIN [None]
  - ABDOMINAL PAIN LOWER [None]
  - ABDOMINAL PAIN UPPER [None]
  - ANHEDONIA [None]
  - ANXIETY [None]
  - CHEST DISCOMFORT [None]
  - COSTOCHONDRITIS [None]
  - DEEP VEIN THROMBOSIS [None]
  - DEPRESSION [None]
  - DIZZINESS [None]
  - DRY MOUTH [None]
  - EXTRADURAL HAEMATOMA [None]
  - HAEMORRHAGE [None]
  - HAEMORRHAGIC CYST [None]
  - HEAD INJURY [None]
  - HEADACHE [None]
  - HYPERTENSION [None]
  - HYPOAESTHESIA [None]
  - INJURY [None]
  - INSOMNIA [None]
  - MIGRAINE [None]
  - MUSCULAR WEAKNESS [None]
  - NECK PAIN [None]
  - OVARIAN CYST [None]
  - PAIN [None]
  - PULMONARY EMBOLISM [None]
  - SPINAL HAEMATOMA [None]
  - THROMBOSIS [None]
  - URINARY TRACT INFECTION [None]
  - VAGINITIS BACTERIAL [None]
